FAERS Safety Report 11212480 (Version 1)
Quarter: 2015Q2

REPORT INFORMATION
  Report Type: Spontaneous
  Country: US (occurrence: None)
  Receive Date: 20150622
  Receipt Date: 20150622
  Transmission Date: 20150821
  Serious: No
  Sender: FDA-Public Use
  Company Number: None

PATIENT
  Age: 66 Year
  Sex: Female

DRUGS (1)
  1. NOVOLOG [Suspect]
     Active Substance: INSULIN ASPART
     Dosage: USING PUMP

REACTIONS (2)
  - Product quality issue [None]
  - Blood glucose increased [None]

NARRATIVE: CASE EVENT DATE: 20150501
